FAERS Safety Report 22628731 (Version 1)
Quarter: 2023Q2

REPORT INFORMATION
  Report Type: Spontaneous
  Country: FR (occurrence: None)
  Receive Date: 20230622
  Receipt Date: 20230622
  Transmission Date: 20230721
  Serious: Yes (Death)
  Sender: FDA-Public Use
  Company Number: 2023A140815

PATIENT
  Age: 42 Year
  Sex: Male

DRUGS (12)
  1. QUETIAPINE [Suspect]
     Active Substance: QUETIAPINE
     Dates: end: 20220412
  2. BENZOYLECGONINE [Suspect]
     Active Substance: BENZOYLECGONINE
     Dates: end: 20220412
  3. CANNABINOLIC ACID [Suspect]
     Active Substance: CANNABINOLIC ACID
     Dates: end: 20220412
  4. COCAINE [Suspect]
     Active Substance: COCAINE
     Dates: end: 20220412
  5. CODEINE [Suspect]
     Active Substance: CODEINE
     Dates: end: 20220412
  6. LAMOTRIGINE [Suspect]
     Active Substance: LAMOTRIGINE
     Dates: end: 20220412
  7. MIANSERIN HYDROCHLORIDE [Suspect]
     Active Substance: MIANSERIN HYDROCHLORIDE
     Dates: end: 20220412
  8. MORPHINE [Suspect]
     Active Substance: MORPHINE
     Dates: end: 20220412
  9. 6-ACETYLMORPHINE [Suspect]
     Active Substance: 6-ACETYLMORPHINE
     Dates: end: 20220412
  10. OXAZEPAM [Suspect]
     Active Substance: OXAZEPAM
     Dates: end: 20220412
  11. ACETAMINOPHEN [Suspect]
     Active Substance: ACETAMINOPHEN
     Dates: end: 20220412
  12. SERTRALINE [Suspect]
     Active Substance: SERTRALINE HYDROCHLORIDE
     Dates: end: 20220412

REACTIONS (2)
  - Poisoning [Fatal]
  - Drug abuse [Fatal]
